FAERS Safety Report 12908447 (Version 2)
Quarter: 2017Q3

REPORT INFORMATION
  Report Type: Report from Study
  Country: None (occurrence: BR)
  Receive Date: 20161103
  Receipt Date: 20170725
  Transmission Date: 20171127
  Serious: Yes (Other)
  Sender: FDA-Public Use
  Company Number: BR-ABBVIE-16P-020-1770832-00

PATIENT
  Age: 35 Year
  Sex: Female
  Weight: 67 kg

DRUGS (4)
  1. SYNTHROID [Suspect]
     Active Substance: LEVOTHYROXINE SODIUM
     Indication: HYPOTHYROIDISM
     Dosage: DAILY DOSE: 25 MCG; 1 TABLET IN THE MORNING
     Route: 048
     Dates: start: 2016, end: 201607
  2. SYNTHROID [Suspect]
     Active Substance: LEVOTHYROXINE SODIUM
     Dosage: 50 MICROGRAM PLUS 25 MCG SPLIT (12.5MCG).
     Route: 048
     Dates: start: 201706
  3. PHENOBARBITAL. [Concomitant]
     Active Substance: PHENOBARBITAL
     Indication: CONVULSION PROPHYLAXIS
     Dosage: DAILY DOSE: 100 MG; 1 TABLET AT NIGHT
     Route: 065
  4. SYNTHROID [Suspect]
     Active Substance: LEVOTHYROXINE SODIUM
     Dosage: DAILY DOSE: 50 MCG; 1 TABLET IN THE MORNING
     Route: 048
     Dates: start: 201607

REACTIONS (8)
  - Abortion spontaneous [Unknown]
  - Fall [Recovered/Resolved]
  - Back injury [Recovered/Resolved]
  - Swelling [Recovering/Resolving]
  - Pregnancy [Unknown]
  - Ligament sprain [Recovered/Resolved]
  - Haemorrhage [Recovered/Resolved]
  - Maternal exposure during pregnancy [Unknown]

NARRATIVE: CASE EVENT DATE: 2016
